FAERS Safety Report 5187991-9 (Version None)
Quarter: 2006Q4

REPORT INFORMATION
  Report Type: 
  Country: None (occurrence: None)
  Receive Date: 20061214
  Receipt Date: 20061130
  Transmission Date: 20070319
  Serious: Yes (Other)
  Sender: FDA-Public Use
  Company Number: 2006RR-04744

PATIENT
  Age: 71 Year
  Sex: Female

DRUGS (6)
  1. SIMVASTATIN [Suspect]
     Indication: BLOOD CHOLESTEROL INCREASED
     Dosage: 40 MG, ORAL
     Route: 048
     Dates: start: 20061012, end: 20061107
  2. ASPIRIN [Concomitant]
  3. CANDESARTAN CILEXETIL + HYDROCHLOROTHIAZIDE [Concomitant]
  4. METFORMIN HYDROCHLORIDE [Concomitant]
  5. NOVOMIX [Concomitant]
  6. TENORMIN [Concomitant]

REACTIONS (1)
  - HYPERSENSITIVITY [None]
